FAERS Safety Report 18125375 (Version 2)
Quarter: 2020Q3

REPORT INFORMATION
  Report Type: Spontaneous
  Country: DE (occurrence: DE)
  Receive Date: 20200807
  Receipt Date: 20200901
  Transmission Date: 20201103
  Serious: Yes (Disabling, Other)
  Sender: FDA-Public Use
  Company Number: DE-PFIZER INC-2020297895

PATIENT
  Sex: Male
  Weight: 3.5 kg

DRUGS (2)
  1. CYTOTEC [Suspect]
     Active Substance: MISOPROSTOL
     Indication: LABOUR INDUCTION
     Dosage: 3 DF (3 TABLETS)
     Dates: start: 20160322, end: 20160322
  2. CYTOTEC [Suspect]
     Active Substance: MISOPROSTOL
     Indication: PROLONGED PREGNANCY
     Dosage: 3 TABLETS 9:00 A.M. ? 3:00 P.M. 1 1/4 TABLETS

REACTIONS (3)
  - Hemiparesis [Not Recovered/Not Resolved]
  - Perinatal brain damage [Not Recovered/Not Resolved]
  - Foetal exposure during delivery [Unknown]

NARRATIVE: CASE EVENT DATE: 20160323
